FAERS Safety Report 5400361-0 (Version None)
Quarter: 2007Q3

REPORT INFORMATION
  Report Type: 
  Country: None (occurrence: None)
  Receive Date: 20070730
  Receipt Date: 20070719
  Transmission Date: 20080115
  Serious: Yes (Hospitalization)
  Sender: FDA-Public Use
  Company Number: B0462365A

PATIENT
  Age: 76 Year
  Sex: Female
  Weight: 49 kg

DRUGS (10)
  1. PAXIL [Suspect]
     Indication: DEPRESSION
     Route: 048
     Dates: end: 20061214
  2. TETRAMIDE [Suspect]
     Indication: DEPRESSION
     Dosage: 10MG PER DAY
     Route: 048
     Dates: start: 20061213, end: 20061214
  3. DEPAS [Suspect]
     Indication: INSOMNIA
     Dosage: .5MG PER DAY
     Route: 048
     Dates: end: 20061213
  4. MIANSERIN HYDROCHLORIDE [Concomitant]
     Dates: end: 20061213
  5. BASEN [Concomitant]
     Indication: DIABETES MELLITUS
     Dosage: .9MG PER DAY
     Route: 048
  6. NATEGLINIDE [Concomitant]
     Indication: DIABETES MELLITUS
     Dosage: 270MG PER DAY
     Route: 048
     Dates: start: 20061113
  7. ACTOS [Concomitant]
     Indication: DIABETES MELLITUS
     Dosage: 30MG PER DAY
     Route: 048
  8. PLAVIX [Concomitant]
     Indication: CEREBRAL INFARCTION
     Dosage: 75MG PER DAY
     Route: 048
     Dates: start: 20061117
  9. ROXATIDINE ACETATE HCL [Concomitant]
     Indication: GASTRITIS
     Dosage: 150MG PER DAY
     Route: 048
  10. SELBEX [Concomitant]
     Indication: GASTRITIS
     Dosage: 100MG PER DAY
     Route: 048

REACTIONS (15)
  - AGITATION [None]
  - ANGER [None]
  - APATHY [None]
  - CIRCADIAN RHYTHM SLEEP DISORDER [None]
  - COGNITIVE DISORDER [None]
  - COMMUNICATION DISORDER [None]
  - DECREASED ACTIVITY [None]
  - DELIRIUM [None]
  - DEPRESSED MOOD [None]
  - DISORIENTATION [None]
  - IRRITABILITY [None]
  - MOOD ALTERED [None]
  - RESTLESSNESS [None]
  - SEDATION [None]
  - SOMNOLENCE [None]
